FAERS Safety Report 14236423 (Version 1)
Quarter: 2017Q4

REPORT INFORMATION
  Report Type: Spontaneous
  Country: US (occurrence: US)
  Receive Date: 20171129
  Receipt Date: 20171129
  Transmission Date: 20180321
  Serious: No
  Sender: FDA-Public Use
  Company Number: US-PFIZER INC-2017507002

PATIENT
  Sex: Female
  Weight: 74.39 kg

DRUGS (9)
  1. METFORMIN [Concomitant]
     Active Substance: METFORMIN HYDROCHLORIDE
     Indication: TYPE 2 DIABETES MELLITUS
     Dosage: 500 MG, 1X/DAY (500MG TABLET ONCE A DAY BY MOUTH)
     Route: 048
  2. ALPRAZOLAM. [Concomitant]
     Active Substance: ALPRAZOLAM
     Indication: ANXIETY
     Dosage: 0.5 MG, AS NEEDED (0.5MG TABLET AS NEEDED BY MOUTH)
     Route: 048
  3. LEVOTHYROXINE. [Concomitant]
     Active Substance: LEVOTHYROXINE
     Indication: THYROID DISORDER
     Dosage: 0.5 MG, 1X/DAY (0.5MG TABLET ONCE A DAY BY MOUTH)
     Route: 048
  4. METAMUCIL [Concomitant]
     Active Substance: PLANTAGO SEED
     Indication: MEDICAL DIET
     Dosage: 2 DF, 1X/DAY (2 CAPSULES ONCE A DAY BY MOUTH)
     Route: 048
  5. SIMVASTATIN. [Concomitant]
     Active Substance: SIMVASTATIN
     Indication: BLOOD CHOLESTEROL ABNORMAL
     Dosage: 10 MG, 1X/DAY (10MG TABLET ONCE A DAY BY MOUTH)
     Route: 048
  6. ATROPINE SULFATE/DIPHENOXYLATE HYDROCHLORIDE [Suspect]
     Active Substance: ATROPINE SULFATE\DIPHENOXYLATE HYDROCHLORIDE
     Indication: IRRITABLE BOWEL SYNDROME
     Dosage: 2.5 MG, AS NEEDED
     Dates: start: 2009
  7. ASPIRIN /00002701/ [Concomitant]
     Active Substance: ASPIRIN
     Dosage: 81 MG, ALTERNATE DAY (81MG TABLET EVERY OTHER DAY BY MOUTH)
     Route: 048
  8. XALATAN [Concomitant]
     Active Substance: LATANOPROST
     Indication: GLAUCOMA
     Dosage: 2 GTT, DAILY (ONE DROP EVERY DAY IN EACH EYE)
     Route: 047
     Dates: start: 200011
  9. CO-Q-10 PLUS [Concomitant]
     Indication: DRUG REHABILITATION
     Dosage: 100 MG, 1X/DAY (100MG TABLET ONCE A DAY BY MOUTH)
     Route: 048

REACTIONS (4)
  - Body height decreased [Unknown]
  - Product use issue [Unknown]
  - Product use in unapproved indication [Unknown]
  - Product quality issue [Unknown]
